FAERS Safety Report 7542627-4 (Version None)
Quarter: 2011Q2

REPORT INFORMATION
  Report Type: 
  Country: None (occurrence: None)
  Receive Date: 20110613
  Receipt Date: 20110606
  Transmission Date: 20111010
  Serious: Yes (Hospitalization, Other)
  Sender: FDA-Public Use
  Company Number: PHHY2011US47277

PATIENT
  Sex: Male

DRUGS (4)
  1. LAMOTRIGINE [Suspect]
     Dosage: 300 MG, DAILY
     Route: 064
  2. LAMOTRIGINE [Suspect]
     Dosage: 50 MG, DAILY
     Route: 064
  3. FLUOXETINE [Suspect]
     Dosage: 60 MG, DAILY
     Route: 064
  4. LAMOTRIGINE [Suspect]
     Dosage: 25 MG, DAILY
     Route: 064

REACTIONS (6)
  - DRUG EXPOSURE VIA BREAST MILK [None]
  - ECZEMA [None]
  - RASH ERYTHEMATOUS [None]
  - NEONATAL INFECTION [None]
  - OXYGEN SATURATION DECREASED [None]
  - DRUG EXPOSURE DURING PREGNANCY [None]
